FAERS Safety Report 7361158-8 (Version None)
Quarter: 2011Q1

REPORT INFORMATION
  Report Type: 
  Country: None (occurrence: None)
  Receive Date: 20110315
  Receipt Date: 20110315
  Transmission Date: 20110831
  Serious: Yes (Other)
  Sender: FDA-Public Use
  Company Number: None

PATIENT
  Sex: Male
  Weight: 88.4514 kg

DRUGS (1)
  1. NOVO-SALBUTAMOL HFA [Suspect]
     Indication: ASTHMA
     Dosage: 100 UG 4X DAILY INHALE  JUST TRIED A COUPLE TIMES - BAD STUFF!
     Route: 055

REACTIONS (5)
  - PALPITATIONS [None]
  - PRODUCT ODOUR ABNORMAL [None]
  - CONDITION AGGRAVATED [None]
  - DRUG INEFFECTIVE [None]
  - ASTHMA [None]
